FAERS Safety Report 7105938-2 (Version None)
Quarter: 2010Q4

REPORT INFORMATION
  Report Type: 
  Country: None (occurrence: None)
  Receive Date: 20101110
  Receipt Date: 20101026
  Transmission Date: 20110411
  Serious: Yes (Death)
  Sender: FDA-Public Use
  Company Number: 011633

PATIENT
  Age: 67 Year
  Sex: Male

DRUGS (4)
  1. BUSULFEX [Suspect]
     Indication: BONE MARROW CONDITIONING REGIMEN
  2. CYCLOPHOSPHAMIDE [Concomitant]
  3. FLUDARABINE PHOSPHATE [Concomitant]
  4. ANTILYMPHOCYTE GLOBULIN (ANTILYMPHOCYTE IMMUNOGLOBULIN (HORSE)) [Concomitant]

REACTIONS (2)
  - NATURAL KILLER-CELL LEUKAEMIA [None]
  - RECURRENT CANCER [None]
